FAERS Safety Report 6335825-9 (Version None)
Quarter: 2009Q3

REPORT INFORMATION
  Report Type: 
  Country: None (occurrence: None)
  Receive Date: 20090828
  Receipt Date: 20090814
  Transmission Date: 20100115
  Serious: Yes (Other)
  Sender: FDA-Public Use
  Company Number: 8041170

PATIENT
  Age: 11 Year
  Sex: Female
  Weight: 31 kg

DRUGS (1)
  1. KEPPRA [Suspect]
     Indication: CONVULSION
     Dosage: 1000 MG 2/D
     Dates: start: 20081201

REACTIONS (2)
  - DIPLOPIA [None]
  - MYDRIASIS [None]
